FAERS Safety Report 5708855-5 (Version None)
Quarter: 2008Q2

REPORT INFORMATION
  Report Type: 
  Country: None (occurrence: None)
  Receive Date: 20080416
  Receipt Date: 20080331
  Transmission Date: 20081010
  Serious: No
  Sender: FDA-Public Use
  Company Number: 002#2#2008-00178

PATIENT
  Age: 78 Year
  Sex: Male
  Weight: 99.7913 kg

DRUGS (6)
  1. NEUPRO [Suspect]
     Indication: PARKINSON'S DISEASE
     Dosage: 2MG/24H,1 IN 1  D,TRANSDERMAL;4MG/24H,1 IN 1 D,TRANSDERMAL; 6MG/24H,1 IN 1 D,TRANSDERMAL;
     Route: 062
     Dates: start: 20071123, end: 20071201
  2. NEUPRO [Suspect]
     Indication: PARKINSON'S DISEASE
     Dosage: 2MG/24H,1 IN 1  D,TRANSDERMAL;4MG/24H,1 IN 1 D,TRANSDERMAL; 6MG/24H,1 IN 1 D,TRANSDERMAL;
     Route: 062
     Dates: start: 20071201, end: 20071201
  3. NEUPRO [Suspect]
     Indication: PARKINSON'S DISEASE
     Dosage: 2MG/24H,1 IN 1  D,TRANSDERMAL;4MG/24H,1 IN 1 D,TRANSDERMAL; 6MG/24H,1 IN 1 D,TRANSDERMAL;
     Route: 062
     Dates: start: 20071201
  4. CARBIDOPA AND LEVODOPA [Concomitant]
  5. LIPITOR [Concomitant]
  6. OXYBUTIN [Concomitant]

REACTIONS (3)
  - DRUG INEFFECTIVE [None]
  - FREEZING PHENOMENON [None]
  - PHARMACEUTICAL PRODUCT COMPLAINT [None]
